FAERS Safety Report 5491833-1 (Version None)
Quarter: 2007Q4

REPORT INFORMATION
  Report Type: 
  Country: None (occurrence: None)
  Receive Date: 20071022
  Receipt Date: 20071018
  Transmission Date: 20080405
  Serious: Yes (Other)
  Sender: FDA-Public Use
  Company Number: IT-BRISTOL-MYERS SQUIBB COMPANY-13942578

PATIENT
  Age: 46 Year
  Sex: Male

DRUGS (14)
  1. STAVUDINE [Suspect]
     Indication: HIV INFECTION
     Dates: start: 19860101
  2. EFAVIRENZ [Suspect]
     Indication: HIV INFECTION
  3. DIDANOSINE [Suspect]
     Indication: HIV INFECTION
  4. ZIDOVUDINE [Suspect]
     Indication: HIV INFECTION
     Dates: start: 19960901
  5. LAMIVUDINE [Suspect]
     Indication: HIV INFECTION
     Dates: start: 19960901
  6. NEVIRAPINE [Suspect]
     Indication: HIV INFECTION
  7. INDINIVIR SULFATE [Suspect]
     Indication: HIV INFECTION
     Dates: start: 19960901
  8. NELFINAVIR [Suspect]
     Indication: HIV INFECTION
  9. RITONAVIR [Suspect]
     Indication: HIV INFECTION
  10. AMPRENAVIR [Suspect]
     Indication: HIV INFECTION
  11. TENOFOVIR [Suspect]
     Indication: HIV INFECTION
  12. PLACEBO [Suspect]
  13. L-870812 [Suspect]
  14. FOSAMPRENAVIR CALCIUM [Suspect]

REACTIONS (3)
  - IMMUNE RECONSTITUTION SYNDROME [None]
  - KAPOSI'S SARCOMA [None]
  - VISCERAL LEISHMANIASIS [None]
